FAERS Safety Report 4885510-5 (Version None)
Quarter: 2005Q4

REPORT INFORMATION
  Report Type: 
  Country: None (occurrence: None)
  Receive Date: 20051220
  Receipt Date: 20050331
  Transmission Date: 20060501
  Serious: Yes (Hospitalization)
  Sender: FDA-Public Use
  Company Number: HQWYE637204APR05

PATIENT
  Age: 24 Year
  Sex: Male
  Weight: 62.2 kg

DRUGS (4)
  1. EFFEXOR XR [Suspect]
     Indication: SOCIAL PHOBIA
     Dosage: SEE IMAGE
     Route: 048
     Dates: start: 20040501, end: 20041103
  2. EFFEXOR XR [Suspect]
     Indication: SOCIAL PHOBIA
     Dosage: SEE IMAGE
     Route: 048
     Dates: start: 20041104
  3. LAMICTAL [Concomitant]
  4. DOXYCYCLINE [Concomitant]

REACTIONS (4)
  - BLOOD CHOLESTEROL INCREASED [None]
  - DISTURBANCE IN ATTENTION [None]
  - MANIA [None]
  - WEIGHT INCREASED [None]
